FAERS Safety Report 4371984-5 (Version None)
Quarter: 2004Q2

REPORT INFORMATION
  Report Type: 
  Country: None (occurrence: None)
  Receive Date: 20040602
  Receipt Date: 20040518
  Transmission Date: 20050107
  Serious: Yes (Hospitalization)
  Sender: FDA-Public Use
  Company Number: S04-USA-02240-01

PATIENT
  Age: 20 Year
  Sex: Female

DRUGS (2)
  1. LEXAPRO [Suspect]
     Indication: POSTPARTUM DEPRESSION
     Dosage: 10 MG QD PO
     Route: 048
     Dates: start: 20040412, end: 20040414
  2. BIRTH CONTROL PILLS (NOS) [Concomitant]

REACTIONS (4)
  - BLOOD POTASSIUM DECREASED [None]
  - SEROTONIN SYNDROME [None]
  - VISION BLURRED [None]
  - VISUAL DISTURBANCE [None]
